FAERS Safety Report 4847038-8 (Version None)
Quarter: 2005Q4

REPORT INFORMATION
  Report Type: 
  Country: None (occurrence: None)
  Receive Date: 20051205
  Receipt Date: 20051125
  Transmission Date: 20060501
  Serious: Yes (Hospitalization, Other)
  Sender: FDA-Public Use
  Company Number: 2005-08-1611

PATIENT
  Age: 32 Year
  Sex: Female

DRUGS (9)
  1. AERIUS (DESLORATADINE)TABLETS   ^LIKE CLARINEX^ [Suspect]
     Indication: HYPERSENSITIVITY
     Dosage: 5 MG PRN ORAL
     Route: 048
  2. AERIUS (DESLORATADINE)TABLETS   ^LIKE CLARINEX^ [Suspect]
     Indication: PRURITUS
     Dosage: 5 MG PRN ORAL
     Route: 048
  3. AERIUS (DESLORATADINE)TABLETS   ^LIKE CLARINEX^ [Suspect]
     Indication: URTICARIA
     Dosage: 5 MG PRN ORAL
     Route: 048
  4. IMOVANE [Concomitant]
  5. CIPRAMIL [Concomitant]
  6. PRIMPERAN INJ [Concomitant]
  7. NEXIUM [Concomitant]
  8. GAVISCON [Concomitant]
  9. CETIRIZINE [Concomitant]

REACTIONS (2)
  - RECTAL CANCER [None]
  - SCAR [None]
